FAERS Safety Report 18500406 (Version 1)
Quarter: 2020Q4

REPORT INFORMATION
  Report Type: Spontaneous
  Country: DE (occurrence: DE)
  Receive Date: 20201113
  Receipt Date: 20201113
  Transmission Date: 20210114
  Serious: Yes (Hospitalization)
  Sender: FDA-Public Use
  Company Number: DE-ALKEM LABORATORIES LIMITED-DE-ALKEM-2020-07763

PATIENT
  Age: 30 Year
  Sex: Female

DRUGS (1)
  1. CEFUROXIME AXETIL. [Suspect]
     Active Substance: CEFUROXIME AXETIL
     Indication: PRODUCT USED FOR UNKNOWN INDICATION
     Dosage: 500 MILLIGRAM 1-0-1-0
     Route: 065

REACTIONS (7)
  - Rash [Unknown]
  - Lip oedema [Unknown]
  - Generalised oedema [Unknown]
  - Oedema peripheral [Unknown]
  - Tachycardia [Unknown]
  - Dyspnoea [Unknown]
  - Face oedema [Unknown]
